FAERS Safety Report 14913141 (Version 1)
Quarter: 2018Q2

REPORT INFORMATION
  Report Type: Spontaneous
  Country: US (occurrence: US)
  Receive Date: 20180501
  Receipt Date: 20180501
  Transmission Date: 20180711
  Serious: Yes (Hospitalization)
  Sender: FDA-Public Use
  Company Number: None

PATIENT
  Sex: Female

DRUGS (16)
  1. METHOTREXATE TABLETS [Concomitant]
     Active Substance: METHOTREXATE
  2. CHLORTHALID [Concomitant]
  3. ZICAM ALLERG [Concomitant]
  4. HUMIRA [Suspect]
     Active Substance: ADALIMUMAB
     Indication: RHEUMATOID ARTHRITIS
     Route: 058
     Dates: start: 20160225
  5. VITAMIN D [Concomitant]
     Active Substance: CHOLECALCIFEROL
  6. PLAQUENIL [Concomitant]
     Active Substance: HYDROXYCHLOROQUINE SULFATE
  7. RESTASIS [Concomitant]
     Active Substance: CYCLOSPORINE
  8. FAMOTIDINE. [Concomitant]
     Active Substance: FAMOTIDINE
  9. XYLIMELTS [Concomitant]
  10. MAGNESIUM-OX [Concomitant]
  11. FOLIC ACID. [Concomitant]
     Active Substance: FOLIC ACID
  12. FLUCANAZOLE [Concomitant]
     Active Substance: FLUCONAZOLE
  13. FEMHRT [Concomitant]
     Active Substance: ETHINYL ESTRADIOL\NORETHINDRONE ACETATE
  14. CALCIUM [Concomitant]
     Active Substance: CALCIUM
  15. SYNTHROID [Concomitant]
     Active Substance: LEVOTHYROXINE SODIUM
  16. PREDNISONE. [Concomitant]
     Active Substance: PREDNISONE

REACTIONS (2)
  - Rheumatoid arthritis [None]
  - Drug dose omission [None]
